FAERS Safety Report 4660957-0 (Version None)
Quarter: 2005Q2

REPORT INFORMATION
  Report Type: 
  Country: None (occurrence: None)
  Receive Date: 20050511
  Receipt Date: 20050429
  Transmission Date: 20051028
  Serious: Yes (Hospitalization, Other)
  Sender: FDA-Public Use
  Company Number: KII-2005-0016387

PATIENT
  Age: 47 Year
  Sex: Female

DRUGS (11)
  1. OXYCODONE HCL [Suspect]
     Dosage: ORAL
     Route: 048
  2. ANTIPSYCHOTICS [Suspect]
  3. ACETAMINOPHEN [Suspect]
  4. PHENCYCLIDINE (PHENCYCLIDINE) [Suspect]
  5. PHENOTHIAZINE                    (PHENOTHIAZINE) [Concomitant]
  6. TRAZODONE HCL [Concomitant]
  7. GASTROINTESTINAL PREPARATION [Concomitant]
  8. BENZODIAZEPINE DERIVATIVES [Concomitant]
  9. ........... [Concomitant]
  10. NORTRIPTYLINE HCL [Concomitant]
  11. VALPROIC (VALPROIC ACID) [Concomitant]

REACTIONS (16)
  - BLOOD GLUCOSE INCREASED [None]
  - BLOOD POTASSIUM DECREASED [None]
  - BLOOD PRESSURE SYSTOLIC DECREASED [None]
  - BODY TEMPERATURE INCREASED [None]
  - COMA [None]
  - CONFUSIONAL STATE [None]
  - ELECTROCARDIOGRAM QT CORRECTED INTERVAL PROLONGED [None]
  - HEART RATE INCREASED [None]
  - MULTIPLE DRUG OVERDOSE [None]
  - POLYSUBSTANCE ABUSE [None]
  - QRS AXIS ABNORMAL [None]
  - SELF-MEDICATION [None]
  - SEPSIS [None]
  - SINUSITIS [None]
  - THERAPY NON-RESPONDER [None]
  - WHITE BLOOD CELL COUNT DECREASED [None]
